FAERS Safety Report 11142494 (Version 3)
Quarter: 2015Q3

REPORT INFORMATION
  Report Type: Report from Study
  Country: KE (occurrence: KE)
  Receive Date: 20150527
  Receipt Date: 20150715
  Transmission Date: 20151125
  Serious: Yes (Hospitalization, Other)
  Sender: FDA-Public Use
  Company Number: KE-GILEAD-2015-0154204

PATIENT
  Age: 31 Year
  Sex: Male
  Weight: 50.3 kg

DRUGS (5)
  1. EFAVIRENZ [Suspect]
     Active Substance: EFAVIRENZ
     Indication: HIV INFECTION
     Dosage: UNK
     Route: 065
     Dates: start: 20140212, end: 20140226
  2. TENOFOVIR DISOPROXIL FUMARATE. [Suspect]
     Active Substance: TENOFOVIR DISOPROXIL FUMARATE
     Indication: HIV INFECTION
     Dosage: UNK
     Route: 065
     Dates: start: 20140212, end: 20140226
  3. RALTEGRAVIR. [Suspect]
     Active Substance: RALTEGRAVIR
     Indication: HIV INFECTION
     Dosage: UNK
     Route: 065
     Dates: start: 20140212, end: 20140226
  4. COTRIMOXAZOLE [Suspect]
     Active Substance: SULFAMETHOXAZOLE\TRIMETHOPRIM
     Indication: HIV INFECTION
     Dosage: UNK
     Route: 065
     Dates: start: 20140212, end: 20140226
  5. EMTRICITABINE [Suspect]
     Active Substance: EMTRICITABINE
     Indication: HIV INFECTION
     Dosage: UNK
     Route: 065
     Dates: start: 20140212, end: 20140226

REACTIONS (1)
  - Peritoneal tuberculosis [Recovered/Resolved]

NARRATIVE: CASE EVENT DATE: 20140219
